FAERS Safety Report 9053892 (Version 1)
Quarter: 2013Q1

REPORT INFORMATION
  Report Type: Spontaneous
  Country: US (occurrence: None)
  Receive Date: 20130201
  Receipt Date: 20130201
  Transmission Date: 20140127
  Serious: No
  Sender: FDA-Public Use
  Company Number: None

PATIENT
  Age: 9 Month
  Sex: Male
  Weight: 7.71 kg

DRUGS (1)
  1. CEFTRIAXONE [Suspect]
     Route: 030
     Dates: start: 20130111

REACTIONS (1)
  - Erythema [None]
